FAERS Safety Report 9878608 (Version 1)
Quarter: 2014Q1

REPORT INFORMATION
  Report Type: Spontaneous
  Country: US (occurrence: US)
  Receive Date: 20140206
  Receipt Date: 20140206
  Transmission Date: 20141002
  Serious: No
  Sender: FDA-Public Use
  Company Number: US-009507513-1402USA001149

PATIENT
  Age: 42 Year
  Sex: Female
  Weight: 86.17 kg

DRUGS (1)
  1. ZEGERID OTC CAPSULES [Suspect]
     Indication: DYSPEPSIA
     Dosage: 20 MG, QD
     Route: 048
     Dates: start: 20131210, end: 20131231

REACTIONS (2)
  - Incorrect drug administration duration [Unknown]
  - Product physical issue [Unknown]
